FAERS Safety Report 9378008 (Version 3)
Quarter: 2014Q1

REPORT INFORMATION
  Report Type: Spontaneous
  Country: US (occurrence: US)
  Receive Date: 20130701
  Receipt Date: 20140317
  Transmission Date: 20141002
  Serious: Yes (Death, Hospitalization)
  Sender: FDA-Public Use
  Company Number: US-B.I. PHARMACEUTICALS,INC./RIDGEFIELD-2013-BI-18738BP

PATIENT
  Age: 87 Year
  Sex: Female
  Weight: 81.65 kg

DRUGS (16)
  1. PRADAXA [Suspect]
     Indication: ATRIAL FIBRILLATION
     Dosage: 300 MG
     Route: 065
     Dates: start: 20110412, end: 20110725
  2. PRADAXA [Suspect]
     Indication: ANTICOAGULANT THERAPY
  3. COREG [Concomitant]
     Dosage: 12.5 MG
     Route: 065
     Dates: start: 20110523
  4. NAMENDA [Concomitant]
     Dosage: 20 MG
     Route: 065
     Dates: start: 20110107
  5. MIRTAZAPINE [Concomitant]
     Dosage: 15 MG
     Route: 065
     Dates: start: 20110525
  6. PRAVASTATIN [Concomitant]
     Dosage: 20 MG
     Route: 065
     Dates: start: 2010
  7. METFORMIN [Concomitant]
     Dosage: 500 MG
     Route: 065
     Dates: start: 20110107
  8. FERROUS SULFATE [Concomitant]
     Route: 065
  9. VITAMIN C [Concomitant]
     Route: 065
  10. LASIX [Concomitant]
     Dosage: 40 MG
     Route: 065
  11. KCL [Concomitant]
     Dosage: 10 MEQ
     Route: 065
  12. ALTACE [Concomitant]
     Dosage: 2.5 MG
     Route: 065
  13. TEKTURNA [Concomitant]
     Dosage: 150 MG
     Route: 065
     Dates: start: 2010
  14. TRIAMTERENE/HCTZ [Concomitant]
     Dosage: 25 MG
     Route: 065
     Dates: start: 2010
  15. ACTOS [Concomitant]
     Dosage: 20 MG
     Route: 065
     Dates: start: 2010
  16. CATAPRES [Concomitant]
     Dosage: 0.2 MG
     Route: 065
     Dates: start: 2010

REACTIONS (7)
  - Diverticulum intestinal haemorrhagic [Fatal]
  - Septic shock [Fatal]
  - Colitis ischaemic [Fatal]
  - Epistaxis [Unknown]
  - Haemorrhagic anaemia [Unknown]
  - International normalised ratio increased [Unknown]
  - Troponin increased [Unknown]
